FAERS Safety Report 4529515-2 (Version None)
Quarter: 2004Q4

REPORT INFORMATION
  Report Type: 
  Country: None (occurrence: None)
  Receive Date: 20041216
  Receipt Date: 20041214
  Transmission Date: 20050328
  Serious: Yes (Death)
  Sender: FDA-Public Use
  Company Number: 04-12-1730

PATIENT
  Age: 58 Year
  Sex: Female

DRUGS (2)
  1. CLOZAPINE [Suspect]
     Dosage: ORAL
     Route: 048
  2. CLOZARIL [Suspect]
     Dosage: ORAL
     Route: 048

REACTIONS (1)
  - OVARIAN CYST [None]
